FAERS Safety Report 6781853-9 (Version None)
Quarter: 2010Q2

REPORT INFORMATION
  Report Type: 
  Country: None (occurrence: None)
  Receive Date: 20100618
  Receipt Date: 20100618
  Transmission Date: 20101027
  Serious: Yes (Other)
  Sender: FDA-Public Use
  Company Number: None

PATIENT
  Sex: Female
  Weight: 52.1637 kg

DRUGS (1)
  1. ZYRTEC [Suspect]
     Indication: HYPERSENSITIVITY
     Dosage: 1 TBLET ONCE PER DAY PO
     Route: 048
     Dates: start: 20000101, end: 20100601

REACTIONS (2)
  - ABNORMAL DREAMS [None]
  - HALLUCINATION [None]
